FAERS Safety Report 24708518 (Version 2)
Quarter: 2024Q4

REPORT INFORMATION
  Report Type: Spontaneous
  Country: FR (occurrence: FR)
  Receive Date: 20241207
  Receipt Date: 20241227
  Transmission Date: 20250115
  Serious: Yes (Other)
  Sender: ABBVIE
  Company Number: None

PATIENT
  Age: 14 Year
  Sex: Male
  Weight: 56 kg

DRUGS (1)
  1. HUMIRA [Suspect]
     Active Substance: ADALIMUMAB
     Indication: Spondyloarthropathy
     Route: 058
     Dates: start: 20230407, end: 20231212

REACTIONS (4)
  - Alopecia [Recovering/Resolving]
  - Skin lesion [Not Recovered/Not Resolved]
  - Asthenia [Not Recovered/Not Resolved]
  - Granuloma [Not Recovered/Not Resolved]

NARRATIVE: CASE EVENT DATE: 20230101
